FAERS Safety Report 5084822-2 (Version None)
Quarter: 2006Q3

REPORT INFORMATION
  Report Type: 
  Country: None (occurrence: None)
  Receive Date: 20060815
  Receipt Date: 20060802
  Transmission Date: 20061208
  Serious: Yes (Death)
  Sender: FDA-Public Use
  Company Number: 2006-02010

PATIENT
  Sex: Male
  Weight: 65 kg

DRUGS (5)
  1. VELCADE [Suspect]
     Indication: MULTIPLE MYELOMA
     Dosage: INTRAVENOUS
     Route: 042
     Dates: start: 20060204, end: 20060210
  2. GENTAMICIN [Concomitant]
  3. M-ESLON (MORPHINE SULFATE) [Concomitant]
  4. THALIDOMIDE [Concomitant]
  5. TIMENTIN (TICARCILLIN DISODIUM, CLAVULANIC ACID) [Concomitant]

REACTIONS (1)
  - CEREBRAL HAEMORRHAGE [None]
